FAERS Safety Report 25690214 (Version 1)
Quarter: 2025Q3

REPORT INFORMATION
  Report Type: Spontaneous
  Country: US (occurrence: US)
  Receive Date: 20250818
  Receipt Date: 20250818
  Transmission Date: 20251020
  Serious: No
  Sender: AMNEAL
  Company Number: US-AMNEAL PHARMACEUTICALS-2024-AMRX-02893

PATIENT
  Sex: Female

DRUGS (1)
  1. DOXYCYCLINE HYCLATE [Suspect]
     Active Substance: DOXYCYCLINE HYCLATE
     Indication: Wound
     Dosage: 100 MG; 1 CAPSULES, 2 /DAY
     Route: 048
     Dates: start: 20240718, end: 20240726

REACTIONS (1)
  - Nasal discharge discolouration [Recovered/Resolved]
